FAERS Safety Report 9680387 (Version 1)
Quarter: 2013Q4

REPORT INFORMATION
  Report Type: Spontaneous
  Country: GB (occurrence: GB)
  Receive Date: 20131111
  Receipt Date: 20131111
  Transmission Date: 20140711
  Serious: Yes (Hospitalization)
  Sender: FDA-Public Use
  Company Number: GB-RANBAXY-2013R1-75014

PATIENT
  Age: 77 Year
  Sex: 0

DRUGS (13)
  1. AMOXICILLIN [Suspect]
     Indication: PRODUCT USED FOR UNKNOWN INDICATION
     Dosage: 500 MG, TID
     Route: 048
     Dates: start: 20100329, end: 20100405
  2. CIPROFLOXACIN [Suspect]
     Indication: PSEUDOMONAS INFECTION
     Dosage: 500 MG, BID
     Route: 048
     Dates: start: 20110428, end: 20110430
  3. CLARITHROMYCIN [Suspect]
     Indication: LOWER RESPIRATORY TRACT INFECTION
     Dosage: 500 MG, BID
     Route: 065
     Dates: start: 20110422, end: 20110428
  4. CLARITHROMYCIN [Suspect]
     Indication: PNEUMONIA ASPIRATION
  5. AMOXICILLIN + CLAVULANIC ACID [Suspect]
     Indication: PNEUMONIA ASPIRATION
     Dosage: UNK
     Route: 042
     Dates: start: 20110413, end: 20110413
  6. LEVOFLOXACIN [Suspect]
     Indication: PNEUMONIA ASPIRATION
     Dosage: UNK
     Route: 042
     Dates: start: 20110414, end: 20110414
  7. MEROPENEM [Suspect]
     Indication: LOWER RESPIRATORY TRACT INFECTION
     Dosage: 2 G, TID
     Route: 041
     Dates: start: 20110422, end: 20110429
  8. PIPERACILLIN/TAZOBACTAM [Suspect]
     Indication: RESPIRATORY FAILURE
     Dosage: 4.5 G, TID
     Route: 041
     Dates: start: 20110414, end: 20110422
  9. PIPERACILLIN/TAZOBACTAM [Suspect]
     Indication: PSEUDOMONAS INFECTION
     Dosage: 4.5 G, TID
     Route: 041
     Dates: start: 20110429, end: 20110509
  10. CLARITHROMYCIN [Suspect]
     Indication: PNEUMONIA ASPIRATION
     Dosage: UNK
     Route: 042
     Dates: start: 20110414, end: 20110414
  11. CLARITHROMYCIN [Suspect]
     Indication: LOWER RESPIRATORY TRACT INFECTION
  12. TAZOCIN [Suspect]
     Indication: PNEUMONIA ASPIRATION
     Dosage: UNK
     Route: 065
  13. TEICOPLANIN [Suspect]
     Indication: STAPHYLOCOCCAL INFECTION
     Dosage: UNK
     Route: 065
     Dates: start: 20110422, end: 20110422

REACTIONS (9)
  - Abnormal faeces [Unknown]
  - Clostridium difficile infection [Recovered/Resolved]
  - C-reactive protein increased [Unknown]
  - Diarrhoea [Unknown]
  - Pyrexia [Unknown]
  - Lung consolidation [Unknown]
  - Pseudomonas infection [Unknown]
  - Faeces discoloured [Unknown]
  - White blood cell count increased [Unknown]
